FAERS Safety Report 6948130-4 (Version None)
Quarter: 2010Q3

REPORT INFORMATION
  Report Type: 
  Country: None (occurrence: None)
  Receive Date: 20100828
  Receipt Date: 20091019
  Transmission Date: 20110219
  Serious: No
  Sender: FDA-Public Use
  Company Number: US-ABBOTT-09P-163-0604069-00

PATIENT
  Sex: Male

DRUGS (2)
  1. NIASPAN [Suspect]
     Indication: PRODUCT USED FOR UNKNOWN INDICATION
     Dosage: AT BEDTIME
     Route: 048
     Dates: start: 20091001
  2. ASPIRIN [Concomitant]
     Indication: PREMEDICATION

REACTIONS (3)
  - FLUSHING [None]
  - OEDEMA PERIPHERAL [None]
  - PARAESTHESIA [None]
